FAERS Safety Report 4601360-9 (Version None)
Quarter: 2005Q1

REPORT INFORMATION
  Report Type: 
  Country: None (occurrence: None)
  Receive Date: 20050308
  Receipt Date: 20050215
  Transmission Date: 20050727
  Serious: Yes (Death, Hospitalization)
  Sender: FDA-Public Use
  Company Number: US-AMGEN-US116504

PATIENT
  Sex: Male

DRUGS (4)
  1. NEULASTA [Suspect]
     Indication: CHEMOTHERAPY
  2. CYCLOPHOSPHAMIDE [Concomitant]
  3. FLUDARABINE [Concomitant]
  4. RITUXAN [Concomitant]

REACTIONS (4)
  - FEBRILE NEUTROPENIA [None]
  - FUNGAL INFECTION [None]
  - NO ADVERSE EFFECT [None]
  - SEPSIS [None]
